FAERS Safety Report 5391630-1 (Version None)
Quarter: 2007Q3

REPORT INFORMATION
  Report Type: 
  Country: None (occurrence: None)
  Receive Date: 20070719
  Receipt Date: 20070706
  Transmission Date: 20080115
  Serious: Yes (Hospitalization)
  Sender: FDA-Public Use
  Company Number: JP-JNJFOC-20070605217

PATIENT
  Sex: Male
  Weight: 66 kg

DRUGS (6)
  1. INFLIXIMAB [Suspect]
     Indication: PSORIATIC ARTHROPATHY
     Route: 042
  2. WHITE PETROLATUM [Concomitant]
     Indication: PSORIATIC ARTHROPATHY
     Dosage: DATE OF ADMINISTRATION: ^BEFORE OCT-2006^; DAILY DOSE: ^ADEQUATE DOSE^
     Route: 061
  3. VICCILLIN S [Concomitant]
     Indication: INFECTION PROPHYLAXIS
     Route: 050
  4. ADONA [Concomitant]
     Indication: PROPHYLAXIS
     Route: 050
  5. TRANSAMIN [Concomitant]
     Indication: PROPHYLAXIS
     Route: 050
  6. AMOXICILLIN TRIHYDRATE [Concomitant]
     Indication: INFECTION PROPHYLAXIS
     Route: 048

REACTIONS (1)
  - ADENOCARCINOMA [None]
